FAERS Safety Report 21755173 (Version 1)
Quarter: 2022Q4

REPORT INFORMATION
  Report Type: Report from Study
  Country: CA (occurrence: CA)
  Receive Date: 20221220
  Receipt Date: 20221220
  Transmission Date: 20230113
  Serious: Yes (Other)
  Sender: FDA-Public Use
  Company Number: CA-PFIZER INC-202201375019

PATIENT
  Age: 68 Year
  Sex: Male

DRUGS (2)
  1. ADALIMUMAB [Suspect]
     Active Substance: ADALIMUMAB
     Indication: Crohn^s disease
     Dosage: 40 MG
     Route: 058
  2. HUMIRA [Concomitant]
     Active Substance: ADALIMUMAB
     Route: 065

REACTIONS (7)
  - Abdominal pain lower [Recovered/Resolved]
  - Bowel movement irregularity [Recovered/Resolved]
  - Diarrhoea [Recovered/Resolved]
  - Induration [Recovered/Resolved]
  - Precancerous skin lesion [Recovered/Resolved]
  - Procedural site reaction [Recovered/Resolved]
  - Skin cancer [Recovered/Resolved]
